FAERS Safety Report 8878758 (Version 3)
Quarter: 2012Q4

REPORT INFORMATION
  Report Type: Report from Study
  Country: GB (occurrence: GB)
  Receive Date: 20121026
  Receipt Date: 20121129
  Transmission Date: 20130627
  Serious: Yes (Hospitalization)
  Sender: FDA-Public Use
  Company Number: GB-TEVA-366547USA

PATIENT
  Age: 80 Year
  Sex: Female
  Weight: 55 kg

DRUGS (11)
  1. TREANDA [Suspect]
     Indication: CHRONIC LYMPHOCYTIC LEUKAEMIA
     Route: 042
     Dates: start: 20120730
  2. OFATUMUMAB [Suspect]
     Indication: CHRONIC LYMPHOCYTIC LEUKAEMIA
     Route: 042
     Dates: start: 20120730
  3. DEXAMETHASONE [Suspect]
     Indication: CHRONIC LYMPHOCYTIC LEUKAEMIA
     Route: 042
     Dates: start: 20120730
  4. ALLOPURINOL [Suspect]
     Indication: CHRONIC LYMPHOCYTIC LEUKAEMIA
     Dosage: Unknown/D
     Route: 048
     Dates: start: 20120830
  5. RANITIDINE [Suspect]
     Indication: ANTACID THERAPY
     Dosage: 300 Milligram Daily;
     Route: 048
  6. PARACETAMOL [Suspect]
     Indication: CHRONIC LYMPHOCYTIC LEUKAEMIA
     Dosage: Unknown/D
     Route: 048
     Dates: start: 20120730
  7. CHLORPHENAMINE [Suspect]
     Indication: CHRONIC LYMPHOCYTIC LEUKAEMIA
     Dosage: Unknown/D
     Route: 048
     Dates: start: 20120730
  8. METOCLOPRAMIDE [Suspect]
     Indication: CHRONIC LYMPHOCYTIC LEUKAEMIA
     Dosage: Unknown/D
     Route: 048
     Dates: start: 20120730
  9. ACICLOVIR [Suspect]
     Indication: CHRONIC LYMPHOCYTIC LEUKAEMIA
     Dosage: unknown/D
     Route: 048
  10. G-CSF [Suspect]
  11. PREDNISONE [Concomitant]

REACTIONS (5)
  - Syncope [Recovered/Resolved]
  - Constipation [Unknown]
  - Abdominal pain [Recovered/Resolved]
  - Nausea [Recovered/Resolved]
  - Vomiting [Recovered/Resolved]
